FAERS Safety Report 9264083 (Version 1)
Quarter: 2013Q2

REPORT INFORMATION
  Report Type: Spontaneous
  Country: US (occurrence: US)
  Receive Date: 20130430
  Receipt Date: 20130430
  Transmission Date: 20140414
  Serious: No
  Sender: FDA-Public Use
  Company Number: US-BAYER-2013-054282

PATIENT
  Age: 30 Year
  Sex: Male
  Weight: 74.83 kg

DRUGS (4)
  1. ALEVE TABLET [Suspect]
     Indication: BACK PAIN
     Route: 048
  2. VENTOLIN [Concomitant]
  3. BUPRENORPHINE [Concomitant]
  4. ANTIDEPRESSANTS [Concomitant]

REACTIONS (1)
  - Incorrect dose administered [None]
